FAERS Safety Report 15922930 (Version 2)
Quarter: 2019Q1

REPORT INFORMATION
  Report Type: Spontaneous
  Country: US (occurrence: US)
  Receive Date: 20190205
  Receipt Date: 20190219
  Transmission Date: 20190417
  Serious: No
  Sender: FDA-Public Use
  Company Number: US-ALLERGAN-1824646US

PATIENT
  Sex: Male

DRUGS (2)
  1. BOTOX [Suspect]
     Active Substance: ONABOTULINUMTOXINA
     Indication: DRY EYE
     Dosage: UNK UNK, SINGLE
     Route: 030
     Dates: start: 20180417, end: 20180417
  2. LOTEMAX [Concomitant]
     Active Substance: LOTEPREDNOL ETABONATE
     Indication: DRY EYE
     Dosage: UNK
     Route: 047
     Dates: start: 20180430

REACTIONS (3)
  - Visual impairment [Unknown]
  - Injection site discomfort [Unknown]
  - Off label use [Unknown]
